FAERS Safety Report 12252198 (Version 1)
Quarter: 2016Q2

REPORT INFORMATION
  Report Type: Report from Study
  Country: US (occurrence: US)
  Receive Date: 20160411
  Receipt Date: 20160411
  Transmission Date: 20160815
  Serious: No
  Sender: FDA-Public Use
  Company Number: US-AMGEN-USASL2016044663

PATIENT
  Age: 50 Year
  Sex: Male

DRUGS (1)
  1. ENBREL [Suspect]
     Active Substance: ETANERCEPT
     Indication: RHEUMATOID ARTHRITIS
     Dosage: UNK UNK, QWK
     Route: 065
     Dates: start: 19990512

REACTIONS (5)
  - Polyp [Unknown]
  - Initial insomnia [Unknown]
  - Dyspepsia [Unknown]
  - Hiatus hernia [Unknown]
  - Constipation [Unknown]

NARRATIVE: CASE EVENT DATE: 2010
